FAERS Safety Report 17521635 (Version 3)
Quarter: 2023Q4

REPORT INFORMATION
  Report Type: Report from Study
  Country: CA (occurrence: CA)
  Receive Date: 20200310
  Receipt Date: 20231206
  Transmission Date: 20240110
  Serious: Yes (Death, Hospitalization, Other)
  Sender: FDA-Public Use
  Company Number: CA-PFIZER INC-2020101974

PATIENT
  Age: 70 Year
  Sex: Male

DRUGS (12)
  1. METHOTREXATE SODIUM [Suspect]
     Active Substance: METHOTREXATE SODIUM
     Route: 065
  2. COSENTYX [Suspect]
     Active Substance: SECUKINUMAB
     Indication: Psoriasis
     Dosage: 300 MG, MONTHLY (QMO)
     Route: 058
     Dates: start: 20161118, end: 20161209
  3. COSENTYX [Suspect]
     Active Substance: SECUKINUMAB
     Indication: Psoriatic arthropathy
     Dosage: 150 MG, MONTHLY (QMO, (LAST MAINTENANCE DOSE))
     Route: 058
     Dates: start: 20161216, end: 20170216
  4. COSENTYX [Suspect]
     Active Substance: SECUKINUMAB
     Dosage: 300 MG, WEEKLY (QW, LOADING DOSE)
     Route: 058
     Dates: start: 20170725
  5. COSENTYX [Suspect]
     Active Substance: SECUKINUMAB
     Dosage: 150 MG, WEEKLY (QW, WEEK 3 OF LOADING DOSES)
     Dates: start: 20170808
  6. COSENTYX [Suspect]
     Active Substance: SECUKINUMAB
     Dosage: 300 MG, MONTHLY (QMO)
     Dates: start: 20171122
  7. COSENTYX [Suspect]
     Active Substance: SECUKINUMAB
     Dosage: 450 MG (Q2W EVERY TWO WEEKS, ESTIMATED)
     Route: 058
  8. COSENTYX [Suspect]
     Active Substance: SECUKINUMAB
     Dosage: 450 MG (Q2W EVERY TWO WEEKS)
     Route: 058
     Dates: start: 2023
  9. CYCLOSPORINE [Suspect]
     Active Substance: CYCLOSPORINE
     Route: 065
  10. HUMIRA [Suspect]
     Active Substance: ADALIMUMAB
     Dosage: UNK
     Route: 065
  11. TALTZ [Suspect]
     Active Substance: IXEKIZUMAB
     Route: 065
  12. MELOXICAM [Concomitant]
     Active Substance: MELOXICAM
     Route: 065

REACTIONS (14)
  - Death [Fatal]
  - Dermatitis psoriasiform [Unknown]
  - Drug ineffective [Unknown]
  - Blood creatinine increased [Unknown]
  - Psoriatic arthropathy [Unknown]
  - Therapeutic product effect incomplete [Unknown]
  - Skin ulcer [Not Recovered/Not Resolved]
  - Full blood count decreased [Unknown]
  - Haemoglobin decreased [Unknown]
  - Psoriasis [Recovering/Resolving]
  - Herpes zoster [Unknown]
  - Skin exfoliation [Recovering/Resolving]
  - Infection [Unknown]
  - Inappropriate schedule of product administration [Unknown]

NARRATIVE: CASE EVENT DATE: 20170101
